FAERS Safety Report 20139730 (Version 1)
Quarter: 2021Q4

REPORT INFORMATION
  Report Type: Spontaneous
  Country: US (occurrence: US)
  Receive Date: 20211202
  Receipt Date: 20211202
  Transmission Date: 20220303
  Serious: Yes (Other)
  Sender: FDA-Public Use
  Company Number: US-BEH-2021138789

PATIENT
  Sex: Male

DRUGS (2)
  1. IDELVION [Suspect]
     Active Substance: COAGULATION FACTOR IX RECOMBINANT HUMAN
     Indication: Factor IX deficiency
     Dosage: 4200 INTERNATIONAL UNIT, QW
     Route: 042
     Dates: start: 20211027
  2. IDELVION [Suspect]
     Active Substance: COAGULATION FACTOR IX RECOMBINANT HUMAN
     Indication: Factor IX deficiency
     Dosage: 4200 INTERNATIONAL UNIT, QW
     Route: 042
     Dates: start: 20211027

REACTIONS (2)
  - Haemarthrosis [Unknown]
  - Haemorrhage [Unknown]
